FAERS Safety Report 21236416 (Version 1)
Quarter: 2022Q3

REPORT INFORMATION
  Report Type: Spontaneous
  Country: JP (occurrence: JP)
  Receive Date: 20220822
  Receipt Date: 20220822
  Transmission Date: 20221026
  Serious: Yes (Other)
  Sender: FDA-Public Use
  Company Number: JP-CHUGAI-2022032056

PATIENT
  Age: 8 Decade
  Sex: Male

DRUGS (2)
  1. ROZLYTREK [Suspect]
     Active Substance: ENTRECTINIB
     Indication: Non-small cell lung cancer
     Dosage: UNK
     Route: 048
     Dates: start: 20220729
  2. ROZLYTREK [Suspect]
     Active Substance: ENTRECTINIB
     Dosage: 200 MILLIGRAM
     Route: 048
     Dates: start: 2022

REACTIONS (2)
  - Lymphangiosis carcinomatosa [Unknown]
  - Aspartate aminotransferase increased [Recovered/Resolved]

NARRATIVE: CASE EVENT DATE: 20220101
